FAERS Safety Report 10133786 (Version 1)
Quarter: 2014Q2

REPORT INFORMATION
  Report Type: Spontaneous
  Country: FR (occurrence: FR)
  Receive Date: 20140428
  Receipt Date: 20140428
  Transmission Date: 20141212
  Serious: Yes (Death, Hospitalization, Other)
  Sender: FDA-Public Use
  Company Number: FR-ABBVIE-14P-056-1228757-00

PATIENT
  Age: 53 Year
  Sex: Male

DRUGS (12)
  1. ENANTONE [Suspect]
     Indication: PROSTATE CANCER
     Route: 050
     Dates: start: 20130907, end: 20131130
  2. XGEVA [Suspect]
     Indication: PRODUCT USED FOR UNKNOWN INDICATION
     Route: 048
     Dates: start: 201310, end: 201311
  3. XTANDI [Suspect]
     Indication: PROSTATE CANCER
     Route: 048
     Dates: start: 20131030, end: 20140120
  4. ZOMETA [Suspect]
     Indication: METASTASES TO BONE
     Route: 042
     Dates: start: 2012, end: 20131223
  5. OXYCONTIN [Concomitant]
     Indication: PRODUCT USED FOR UNKNOWN INDICATION
  6. OXYNORM [Concomitant]
     Indication: PRODUCT USED FOR UNKNOWN INDICATION
  7. PECFENT [Concomitant]
     Indication: PRODUCT USED FOR UNKNOWN INDICATION
  8. OMEPRAZOLE [Concomitant]
     Indication: PRODUCT USED FOR UNKNOWN INDICATION
  9. SECTRAL [Concomitant]
     Indication: PRODUCT USED FOR UNKNOWN INDICATION
  10. SOLUPRED [Concomitant]
     Indication: PRODUCT USED FOR UNKNOWN INDICATION
  11. NOCTAMIDE [Concomitant]
     Indication: PRODUCT USED FOR UNKNOWN INDICATION
  12. ZYTIGA [Concomitant]
     Indication: PRODUCT USED FOR UNKNOWN INDICATION

REACTIONS (5)
  - Prostate cancer [Fatal]
  - Cholestasis [Unknown]
  - Anaemia [Unknown]
  - Subdural haematoma [Unknown]
  - Thrombocytopenia [Unknown]
